FAERS Safety Report 19824351 (Version 1)
Quarter: 2021Q3

REPORT INFORMATION
  Report Type: Spontaneous
  Country: US (occurrence: US)
  Receive Date: 20210913
  Receipt Date: 20210913
  Transmission Date: 20211014
  Serious: No
  Sender: FDA-Public Use
  Company Number: US-PERRIGO-21US002827

PATIENT
  Age: 73 Year
  Sex: Male
  Weight: 104.31 kg

DRUGS (5)
  1. ANTIHYPERTENSIVES [Concomitant]
     Active Substance: UNSPECIFIED INGREDIENT
     Indication: HYPERTENSION
     Dosage: UNKNOWN, UNKNOWN
     Route: 065
     Dates: start: 2019
  2. VIAGRA JET [Concomitant]
     Active Substance: SILDENAFIL CITRATE
     Indication: LIBIDO DECREASED
     Dosage: UNKNOWN, UNKNOWN
     Route: 065
     Dates: start: 2020
  3. TESTOSTERONE. [Suspect]
     Active Substance: TESTOSTERONE
     Indication: BLOOD TESTOSTERONE DECREASED
     Dosage: 40.5 MG, QD
     Route: 061
     Dates: start: 2019
  4. TESTOSTERONE. [Suspect]
     Active Substance: TESTOSTERONE
     Indication: ASTHENIA
  5. TESTOSTERONE. [Suspect]
     Active Substance: TESTOSTERONE
     Indication: LIBIDO DECREASED

REACTIONS (3)
  - Therapeutic product effect decreased [Unknown]
  - Erectile dysfunction [Not Recovered/Not Resolved]
  - Off label use [Not Recovered/Not Resolved]

NARRATIVE: CASE EVENT DATE: 2019
